FAERS Safety Report 8109216 (Version 2)
Quarter: 2012Q4

REPORT INFORMATION
  Report Type: 
  Country: US (occurrence: US)
  Receive Date: 20110826
  Receipt Date: 20121212
  Transmission Date: 20130627
  Serious: Yes (Hospitalization)
  Sender: FDA-Public Use
  Company Number: PHHO2011US01029

PATIENT
  Age: 65 Year
  Sex: Male
  Weight: 98.5 kg

DRUGS (8)
  1. ZORTRESS [Suspect]
     Indication: HEART TRANSPLANT
     Dosage: 0.5 mg, BID
     Route: 048
     Dates: start: 20040729
  2. ZORTRESS [Suspect]
     Dosage: 0.75 mg, BID
     Route: 048
     Dates: start: 20101209
  3. ZORTRESS [Suspect]
     Dosage: 0.75 mg, BID
     Route: 048
     Dates: start: 20110727
  4. NEORAL [Concomitant]
     Indication: IMMUNOSUPPRESSION
  5. PREDNISOLONE [Concomitant]
     Indication: IMMUNOSUPPRESSION
  6. ACE INHIBITORS [Concomitant]
  7. DIURETICS [Concomitant]
  8. PEPCID [Concomitant]

REACTIONS (7)
  - Renal failure acute [Recovered/Resolved]
  - Azotaemia [Recovered/Resolved]
  - Concomitant disease progression [Recovering/Resolving]
  - Anaemia [Recovering/Resolving]
  - Arteriovenous malformation [Recovered/Resolved]
  - Upper gastrointestinal haemorrhage [Recovered/Resolved]
  - Dysgeusia [Recovered/Resolved]
